FAERS Safety Report 11018573 (Version 2)
Quarter: 2015Q2

REPORT INFORMATION
  Report Type: Spontaneous
  Country: US (occurrence: US)
  Receive Date: 20150412
  Receipt Date: 20150524
  Transmission Date: 20150821
  Serious: Yes (Other)
  Sender: FDA-Public Use
  Company Number: US-JNJFOC-20140819768

PATIENT

DRUGS (3)
  1. TH-302 [Suspect]
     Active Substance: EVOFOSFAMIDE
     Indication: SOFT TISSUE SARCOMA
     Route: 065
  2. G-CSF [Concomitant]
     Active Substance: GRANULOCYTE COLONY-STIMULATING FACTOR NOS
     Route: 065
  3. DOXORUBICIN [Suspect]
     Active Substance: DOXORUBICIN
     Indication: SOFT TISSUE SARCOMA
     Route: 042

REACTIONS (2)
  - Product use issue [Unknown]
  - Febrile neutropenia [Unknown]
